FAERS Safety Report 4479688-5 (Version None)
Quarter: 2004Q4

REPORT INFORMATION
  Report Type: 
  Country: None (occurrence: None)
  Receive Date: 20041020
  Receipt Date: 20041008
  Transmission Date: 20050328
  Serious: Yes (Hospitalization)
  Sender: FDA-Public Use
  Company Number: FR-GLAXOSMITHKLINE-B0348271A

PATIENT
  Age: 21 Year
  Sex: Male

DRUGS (3)
  1. VALACYCLOVIR HCL [Suspect]
     Dosage: 6UNIT PER DAY
     Route: 048
     Dates: end: 20040915
  2. ENTOCORT [Suspect]
     Route: 048
     Dates: end: 20040916
  3. PYOSTACINE 500 [Suspect]
     Dosage: 2G PER DAY
     Route: 048
     Dates: end: 20040913

REACTIONS (2)
  - HYPOXIA [None]
  - LUNG DISORDER [None]
